FAERS Safety Report 13711057 (Version 1)
Quarter: 2017Q2

REPORT INFORMATION
  Report Type: Spontaneous
  Country: US (occurrence: US)
  Receive Date: 20170630
  Receipt Date: 20170630
  Transmission Date: 20170830
  Serious: Yes (Hospitalization)
  Sender: FDA-Public Use
  Company Number: None

PATIENT
  Age: 81 Year
  Sex: Male

DRUGS (1)
  1. ATORVASTATIN [Suspect]
     Active Substance: ATORVASTATIN
     Indication: CARDIAC OPERATION
     Dosage: 40 MG PM PO
     Route: 048
     Dates: start: 20160304, end: 20160526

REACTIONS (14)
  - Aspartate aminotransferase increased [None]
  - Jaundice [None]
  - Alanine aminotransferase increased [None]
  - Blood bilirubin increased [None]
  - Hepatic enzyme abnormal [None]
  - Blood alkaline phosphatase increased [None]
  - Decreased appetite [None]
  - Faeces discoloured [None]
  - Liver injury [None]
  - Chromaturia [None]
  - Oesophageal carcinoma [None]
  - Dyspepsia [None]
  - Fatigue [None]
  - Biliary dilatation [None]

NARRATIVE: CASE EVENT DATE: 20160526
